FAERS Safety Report 14489934 (Version 10)
Quarter: 2019Q3

REPORT INFORMATION
  Report Type: Report from Study
  Country: US (occurrence: US)
  Receive Date: 20180206
  Receipt Date: 20190913
  Transmission Date: 20191004
  Serious: No
  Sender: FDA-Public Use
  Company Number: US-BRISTOL-MYERS SQUIBB COMPANY-BMS-2018-010831

PATIENT
  Sex: Female

DRUGS (1)
  1. ABATACEPT [Suspect]
     Active Substance: ABATACEPT
     Indication: RHEUMATOID ARTHRITIS
     Dosage: 125 MILLIGRAM, QWK
     Route: 058
     Dates: start: 201209

REACTIONS (10)
  - Injection site pain [Unknown]
  - Device leakage [Unknown]
  - Drug ineffective [Unknown]
  - Malaise [Unknown]
  - Contusion [Unknown]
  - Device malfunction [Unknown]
  - Liquid product physical issue [Unknown]
  - Injection site bruising [Not Recovered/Not Resolved]
  - Hypertension [Unknown]
  - Device defective [Unknown]
